FAERS Safety Report 5391853-1 (Version None)
Quarter: 2007Q3

REPORT INFORMATION
  Report Type: 
  Country: None (occurrence: None)
  Receive Date: 20070718
  Receipt Date: 20070712
  Transmission Date: 20080115
  Serious: Yes (Hospitalization)
  Sender: FDA-Public Use
  Company Number: 2007BI011677

PATIENT
  Age: 44 Year
  Sex: Male

DRUGS (4)
  1. AVONEX [Suspect]
     Indication: MULTIPLE SCLEROSIS
     Dosage: 30 UG; QW; IM
     Route: 030
     Dates: start: 20010101
  2. DETROL LA [Interacting]
  3. TRILEPTAL [Concomitant]
  4. FOSAMAX [Concomitant]

REACTIONS (2)
  - ARTHROPATHY [None]
  - OSTEONECROSIS [None]
